FAERS Safety Report 8581655-7 (Version None)
Quarter: 2012Q3

REPORT INFORMATION
  Report Type: 
  Country: None (occurrence: None)
  Receive Date: 20120809
  Receipt Date: 20120731
  Transmission Date: 20120928
  Serious: Yes (Hospitalization)
  Sender: FDA-Public Use
  Company Number: FR-ASTRAZENECA-2012SE54178

PATIENT
  Age: 21604 Day
  Sex: Male

DRUGS (6)
  1. XYLOCAINE [Suspect]
     Indication: LOCAL ANAESTHESIA
     Dosage: ONCE/SNGLE ADMINISTRATION
     Route: 065
     Dates: start: 20111128, end: 20111128
  2. XANAX [Concomitant]
  3. BETADINE [Suspect]
     Dosage: ONCE/SNGLE ADMINISTRATION
     Route: 003
     Dates: start: 20111128, end: 20111128
  4. MIDAZOLAM HCL [Suspect]
     Indication: ANAESTHESIA
     Dosage: ONCE/SNGLE ADMINISTRATION
     Route: 042
     Dates: start: 20111128, end: 20111128
  5. CEFAZOLIN [Suspect]
     Indication: ANTIBIOTIC PROPHYLAXIS
     Dosage: ONCE/SNGLE ADMINISTRATION
     Route: 042
     Dates: start: 20111128, end: 20111128
  6. CHIROCAINE [Suspect]
     Indication: LOCAL ANAESTHESIA
     Dosage: ONCE/SNGLE ADMINISTRATION
     Route: 065
     Dates: start: 20111128, end: 20111128

REACTIONS (1)
  - ANAPHYLACTIC SHOCK [None]
